FAERS Safety Report 7349964-7 (Version None)
Quarter: 2011Q1

REPORT INFORMATION
  Report Type: 
  Country: None (occurrence: None)
  Receive Date: 20110314
  Receipt Date: 20110307
  Transmission Date: 20110831
  Serious: Yes (Hospitalization, Other)
  Sender: FDA-Public Use
  Company Number: US-ELI_LILLY_AND_COMPANY-US201011002614

PATIENT
  Sex: Male
  Weight: 74.2 kg

DRUGS (16)
  1. VITAMIN B-12 [Concomitant]
     Dates: start: 20101118
  2. FOLIC ACID [Concomitant]
     Indication: PROPHYLAXIS
     Dates: start: 20101118
  3. PROCHLORPERAZINE [Concomitant]
     Indication: NAUSEA
     Dosage: UNK, AS NEEDED
     Dates: start: 20101020
  4. LORAZEPAM [Concomitant]
  5. OMEPRAZOLE [Concomitant]
  6. ALBUTEROL [Concomitant]
  7. MORPHINE [Concomitant]
  8. OMEPRAZOLE [Concomitant]
     Dates: start: 20100716
  9. ASPIRIN [Concomitant]
  10. CARBOPLATIN [Suspect]
     Indication: NON-SMALL CELL LUNG CANCER
     Dosage: 6 D/F (AUC), OTHER EVERY 21 DAYS
     Route: 042
     Dates: start: 20101020, end: 20101020
  11. LORTADINE [Concomitant]
     Indication: HYPERSENSITIVITY
     Dates: start: 20100714
  12. AMIODARONE [Concomitant]
  13. SENNOSIDES A+B [Concomitant]
  14. PEMETREXED [Suspect]
     Indication: NON-SMALL CELL LUNG CANCER
     Dosage: 500 MG/M2, OTHER (EVERY 21 DAYS)
     Route: 042
     Dates: start: 20101020, end: 20101020
  15. DOCUSATE [Concomitant]
  16. MOXIFLOXACIN [Concomitant]

REACTIONS (5)
  - HAEMOPTYSIS [None]
  - ACTIVATED PARTIAL THROMBOPLASTIN TIME PROLONGED [None]
  - PLEURAL EFFUSION [None]
  - SUPRAVENTRICULAR TACHYCARDIA [None]
  - CHEST PAIN [None]
